FAERS Safety Report 5773449-2 (Version None)
Quarter: 2008Q2

REPORT INFORMATION
  Report Type: 
  Country: None (occurrence: None)
  Receive Date: 20080616
  Receipt Date: 20080529
  Transmission Date: 20081010
  Serious: No
  Sender: FDA-Public Use
  Company Number: US-AVENTIS-200812755US

PATIENT
  Age: 44 Year
  Sex: Female

DRUGS (5)
  1. APIDRA [Suspect]
     Dosage: DOSE: SLIDING SCALE
     Route: 051
     Dates: start: 20070301
  2. OPTICLIK (INSULIN INJECTION PEN) [Suspect]
     Dates: start: 20070101
  3. LANTUS [Concomitant]
     Dosage: DOSE: UNK
  4. OPTICLIK (INSULIN INJECTION PEN) [Concomitant]
  5. SIMVASTATIN [Concomitant]

REACTIONS (4)
  - BLOOD GLUCOSE DECREASED [None]
  - BLOOD GLUCOSE INCREASED [None]
  - DEVICE FAILURE [None]
  - OVERDOSE [None]
